FAERS Safety Report 9316325 (Version 1)
Quarter: 2013Q2

REPORT INFORMATION
  Report Type: Spontaneous
  Country: GB (occurrence: None)
  Receive Date: 20130522
  Receipt Date: 20130522
  Transmission Date: 20140414
  Serious: Yes (Hospitalization)
  Sender: FDA-Public Use
  Company Number: 2013AP005217

PATIENT
  Age: 56 Year
  Sex: Male

DRUGS (1)
  1. ALENDRONIC ACID (ALENDRONIC ACID) [Suspect]

REACTIONS (2)
  - Osteonecrosis [None]
  - Ear disorder [None]
